FAERS Safety Report 24141247 (Version 2)
Quarter: 2024Q3

REPORT INFORMATION
  Report Type: Spontaneous
  Country: ES (occurrence: ES)
  Receive Date: 20240726
  Receipt Date: 20240802
  Transmission Date: 20241017
  Serious: Yes (Other)
  Sender: MYLAN
  Company Number: ES-MYLANLABS-2024M1068906

PATIENT
  Age: 57 Year
  Sex: Female

DRUGS (3)
  1. QUETIAPINE [Suspect]
     Active Substance: QUETIAPINE
     Indication: Depression
     Dosage: 200 MILLIGRAM, PM (200MG AT NIGHT ORALLY)
     Route: 048
     Dates: start: 20230725
  2. VENLAFAXINE [Suspect]
     Active Substance: VENLAFAXINE HYDROCHLORIDE
     Indication: Depression
     Dosage: 150 MILLIGRAM, AM (150MG AT BREAKFAST ORALLY)
     Route: 048
     Dates: start: 20230725
  3. RIVOTRIL [Suspect]
     Active Substance: CLONAZEPAM
     Indication: Product used for unknown indication
     Dosage: 3 MILLIGRAM, PM (3 MILLIGRAMS AT NIGHT ORALLY)
     Route: 048
     Dates: start: 20231003

REACTIONS (2)
  - Leukopenia [Not Recovered/Not Resolved]
  - Neutropenia [Not Recovered/Not Resolved]

NARRATIVE: CASE EVENT DATE: 20240710
